FAERS Safety Report 6789083-1 (Version None)
Quarter: 2010Q2

REPORT INFORMATION
  Report Type: 
  Country: None (occurrence: None)
  Receive Date: 20100623
  Receipt Date: 20080725
  Transmission Date: 20101027
  Serious: Yes (Other)
  Sender: FDA-Public Use
  Company Number: US-PFIZER INC-2008049018

PATIENT
  Sex: Female
  Weight: 49.4 kg

DRUGS (5)
  1. DEPO-PROVERA SUSPENSION/INJ [Suspect]
     Indication: CONTRACEPTION
     Dosage: 1ST INJECTION
     Route: 030
     Dates: start: 20070516, end: 20070516
  2. DEPO-PROVERA SUSPENSION/INJ [Suspect]
     Dosage: 2ND INJECTION
     Route: 030
     Dates: start: 20070801, end: 20070801
  3. DEPO-PROVERA SUSPENSION/INJ [Suspect]
     Dosage: 3RD INJECTION
     Route: 030
     Dates: start: 20071017, end: 20071017
  4. DEPO-PROVERA SUSPENSION/INJ [Suspect]
     Dosage: 4TH INJECTION
     Route: 030
     Dates: start: 20080103, end: 20080103
  5. DEPO-PROVERA SUSPENSION/INJ [Suspect]
     Dosage: 5TH INJECTION
     Route: 030
     Dates: start: 20080324, end: 20080324

REACTIONS (4)
  - DRUG INEFFECTIVE [None]
  - HEADACHE [None]
  - NAUSEA [None]
  - UNINTENDED PREGNANCY [None]
